FAERS Safety Report 8318846-6 (Version None)
Quarter: 2012Q2

REPORT INFORMATION
  Report Type: 
  Country: None (occurrence: None)
  Receive Date: 20120426
  Receipt Date: 20120426
  Transmission Date: 20120825
  Serious: Yes (Hospitalization)
  Sender: FDA-Public Use
  Company Number: None

PATIENT
  Age: 65 Year
  Sex: Male
  Weight: 60.283 kg

DRUGS (4)
  1. MARINOL [Concomitant]
  2. MS CONTIN [Concomitant]
  3. GEMCITABINE [Suspect]
     Indication: ADENOCARCINOMA PANCREAS
     Dosage: 1310 MG
     Dates: start: 20120329, end: 20120405
  4. ERLOTINIB HYDROCHLORIDE [Suspect]
     Dosage: 150MG
     Dates: start: 20120308

REACTIONS (6)
  - CONFUSIONAL STATE [None]
  - HYPOTENSION [None]
  - HAEMATURIA [None]
  - PYREXIA [None]
  - HYPOPHAGIA [None]
  - ANAEMIA [None]
